FAERS Safety Report 8374199-9 (Version None)
Quarter: 2012Q2

REPORT INFORMATION
  Report Type: 
  Country: None (occurrence: None)
  Receive Date: 20120518
  Receipt Date: 20120518
  Transmission Date: 20120825
  Serious: Yes (Other)
  Sender: FDA-Public Use
  Company Number: None

PATIENT
  Sex: Female
  Weight: 56.6996 kg

DRUGS (2)
  1. AGE SHIELD FACE SUNBLOCK LOTION SPF 110 NEUTROGENA [Suspect]
     Indication: PROPHYLAXIS AGAINST SOLAR RADIATION
     Dosage: QUARTER SIZE AMT TO FACE, NECK
     Dates: start: 20120420, end: 20120517
  2. DRY-TOUCH SUNBLOCK SPF 100+ NEUTORGENA [Suspect]
     Indication: PROPHYLAXIS AGAINST SOLAR RADIATION
     Dosage: 1 OZ OF BODY DAILY
     Dates: start: 20120420, end: 20120517

REACTIONS (7)
  - APPLICATION SITE ERYTHEMA [None]
  - APPLICATION SITE RASH [None]
  - APPLICATION SITE PAIN [None]
  - APPLICATION SITE PRURITUS [None]
  - SWELLING FACE [None]
  - APPLICATION SITE URTICARIA [None]
  - APPLICATION SITE SCAR [None]
